FAERS Safety Report 20189110 (Version 1)
Quarter: 2021Q4

REPORT INFORMATION
  Report Type: Other
  Country: TR (occurrence: None)
  Receive Date: 20211215
  Receipt Date: 20211215
  Transmission Date: 20220303
  Serious: Yes (Other)
  Sender: FDA-Public Use
  Company Number: TR-ROCHE-2981201

PATIENT
  Age: 49 Year
  Sex: Male

DRUGS (3)
  1. BEVACIZUMAB [Suspect]
     Active Substance: BEVACIZUMAB
     Indication: Glioblastoma multiforme
     Route: 065
  2. TEMOZOLOMIDE [Concomitant]
     Active Substance: TEMOZOLOMIDE
  3. IRINOTECAN [Concomitant]
     Active Substance: IRINOTECAN

REACTIONS (1)
  - IIIrd nerve paralysis [Recovered/Resolved]
